FAERS Safety Report 9818098 (Version 1)
Quarter: 2013Q4

REPORT INFORMATION
  Report Type: Spontaneous
  Country: US (occurrence: None)
  Receive Date: 20131223
  Receipt Date: 20131223
  Transmission Date: 20140711
  Serious: No
  Sender: FDA-Public Use
  Company Number: 218619

PATIENT
  Age: 65 Year
  Sex: Male

DRUGS (5)
  1. PICATO GEL [Suspect]
     Indication: ACTINIC KERATOSIS
     Route: 061
     Dates: start: 20120814
  2. LISINOPRIL (PRINZIDE) [Concomitant]
  3. TERAZOSIN (TERAZOSIN) [Concomitant]
  4. ALEVE (NAPROXEN SODIUM) [Concomitant]
  5. MULTIVITAMIN (MULTIVIT) [Concomitant]

REACTIONS (1)
  - Application site erythema [None]
